FAERS Safety Report 8060668-8 (Version None)
Quarter: 2012Q1

REPORT INFORMATION
  Report Type: 
  Country: None (occurrence: None)
  Receive Date: 20120120
  Receipt Date: 20120119
  Transmission Date: 20120608
  Serious: Yes (Other)
  Sender: FDA-Public Use
  Company Number: US-GILEAD-2011-0048392

PATIENT
  Age: 30 Year
  Sex: Female

DRUGS (7)
  1. NORVIR [Concomitant]
     Indication: HIV INFECTION
     Dosage: 100 MG, QD
     Route: 048
     Dates: start: 20110621
  2. ZIAGEN [Concomitant]
     Indication: HIV INFECTION
     Dosage: UNK
     Route: 048
     Dates: end: 20110621
  3. REYATAZ [Concomitant]
     Indication: HIV INFECTION
     Dosage: 300 MG, QD
     Route: 048
     Dates: start: 20110621
  4. INTELENCE [Concomitant]
     Indication: HIV INFECTION
     Dosage: UNK
     Route: 048
     Dates: end: 20110621
  5. EPIVIR [Concomitant]
     Indication: HIV INFECTION
     Dosage: UNK
     Route: 048
     Dates: end: 20110621
  6. BACTRIM [Concomitant]
     Indication: PRODUCT USED FOR UNKNOWN INDICATION
     Dosage: UNK
  7. EMTRICITABINE/TENOFOVIR DISOPROXIL FUMARATE [Suspect]
     Indication: HIV INFECTION
     Dosage: 1 DF, QD
     Route: 048
     Dates: start: 20110621

REACTIONS (1)
  - ABORTION SPONTANEOUS [None]
